FAERS Safety Report 25606376 (Version 1)
Quarter: 2025Q3

REPORT INFORMATION
  Report Type: Spontaneous
  Country: US (occurrence: US)
  Receive Date: 20250725
  Receipt Date: 20250725
  Transmission Date: 20251021
  Serious: No
  Sender: RECORDATI
  Company Number: US-RECORDATI RARE DISEASE INC.-2024005727

PATIENT

DRUGS (3)
  1. SYLVANT [Suspect]
     Active Substance: SILTUXIMAB
     Indication: Castleman^s disease
     Dosage: 11 MILLIGRAM/KILOGRAM, Q3W
     Route: 042
  2. SYLVANT [Suspect]
     Active Substance: SILTUXIMAB
     Route: 042
  3. SYLVANT [Suspect]
     Active Substance: SILTUXIMAB
     Dosage: 11 MILLIGRAM/KILOGRAM, Q3W
     Route: 042

REACTIONS (4)
  - Mucosal inflammation [Unknown]
  - Toothache [Unknown]
  - Fatigue [Unknown]
  - Disease progression [Recovered/Resolved]
